FAERS Safety Report 7935691-1 (Version None)
Quarter: 2011Q4

REPORT INFORMATION
  Report Type: 
  Country: None (occurrence: None)
  Receive Date: 20111123
  Receipt Date: 20111114
  Transmission Date: 20120403
  Serious: Yes (Other)
  Sender: FDA-Public Use
  Company Number: US-BAYER-2011-110412

PATIENT
  Age: 53 Year
  Sex: Female
  Weight: 61.678 kg

DRUGS (2)
  1. CLIMARA [Suspect]
     Indication: HYSTERECTOMY
     Dosage: 0.375 MG, OW
     Route: 062
     Dates: end: 20111003
  2. LOSARTAN POTASSIUM [Concomitant]
     Indication: HYPERTENSION
     Dosage: 50 MG, QD

REACTIONS (6)
  - BLOOD CALCIUM INCREASED [None]
  - VITAMIN D DEFICIENCY [None]
  - INFECTIOUS THYROIDITIS [None]
  - PARATHYROID TUMOUR BENIGN [None]
  - URINE PHOSPHORUS INCREASED [None]
  - VITAMIN B12 DEFICIENCY [None]
